FAERS Safety Report 6230329-6 (Version None)
Quarter: 2009Q2

REPORT INFORMATION
  Report Type: 
  Country: None (occurrence: None)
  Receive Date: 20090615
  Receipt Date: 20090320
  Transmission Date: 20091009
  Serious: Yes (Other)
  Sender: FDA-Public Use
  Company Number: FR-GENENTECH-284799

PATIENT
  Sex: Male

DRUGS (4)
  1. XOLAIR [Suspect]
     Indication: DRUG USE FOR UNKNOWN INDICATION
     Dosage: 375 MG, 2/WEEK
     Route: 058
  2. XOLAIR [Suspect]
     Dosage: 375 MG, 2/WEEK
     Route: 058
     Dates: start: 20090318
  3. SOLUPRED [Suspect]
     Indication: DRUG USE FOR UNKNOWN INDICATION
     Dosage: 60 MG, QD
  4. SOLUPRED [Suspect]
     Dosage: 50 MG, QD

REACTIONS (3)
  - HEADACHE [None]
  - MYALGIA [None]
  - SLEEP DISORDER [None]
